FAERS Safety Report 26086361 (Version 2)
Quarter: 2025Q4

REPORT INFORMATION
  Report Type: Spontaneous
  Country: US (occurrence: US)
  Receive Date: 20251125
  Receipt Date: 20251209
  Transmission Date: 20260117
  Serious: Yes (Other)
  Sender: BAXTER
  Company Number: US-MLMSERVICE-20251110-PI708398-00128-1

PATIENT
  Age: 34 Year
  Sex: Male

DRUGS (4)
  1. DOXORUBICIN [Suspect]
     Active Substance: DOXORUBICIN
     Indication: Ewing^s sarcoma
     Dosage: INITIATED CHEMOTHERAPY WITH VINCRISTINE AND DOXORUBICIN ALTERNATING WITH IFOSFAMIDE AND ETOPOSIDE
     Route: 065
  2. IFOSFAMIDE [Suspect]
     Active Substance: IFOSFAMIDE
     Indication: Ewing^s sarcoma
     Dosage: INITIATED CHEMOTHERAPY WITH VINCRISTINE AND DOXORUBICIN ALTERNATING WITH IFOSFAMIDE AND ETOPOSIDE
     Route: 065
  3. ETOPOSIDE [Suspect]
     Active Substance: ETOPOSIDE
     Indication: Ewing^s sarcoma
     Dosage: INITIATED CHEMOTHERAPY WITH VINCRISTINE AND DOXORUBICIN ALTERNATING WITH IFOSFAMIDE AND ETOPOSIDE
     Route: 065
  4. VINCRISTINE [Suspect]
     Active Substance: VINCRISTINE
     Indication: Ewing^s sarcoma
     Dosage: INITIATED CHEMOTHERAPY WITH VINCRISTINE AND DOXORUBICIN ALTERNATING WITH IFOSFAMIDE AND ETOPOSIDE
     Route: 065

REACTIONS (2)
  - Pneumonia [Unknown]
  - Febrile neutropenia [Unknown]
